FAERS Safety Report 23769525 (Version 1)
Quarter: 2024Q2

REPORT INFORMATION
  Report Type: Spontaneous
  Country: US (occurrence: US)
  Receive Date: 20240422
  Receipt Date: 20240422
  Transmission Date: 20240716
  Serious: No
  Sender: FDA-Public Use
  Company Number: US-PFIZER INC-PV202400051087

PATIENT

DRUGS (3)
  1. PALBOCICLIB [Suspect]
     Active Substance: PALBOCICLIB
     Indication: Breast cancer metastatic
  2. LYNPARZA [Concomitant]
     Active Substance: OLAPARIB
  3. ELACESTRANT [Concomitant]
     Active Substance: ELACESTRANT

REACTIONS (1)
  - Neoplasm progression [Unknown]
